FAERS Safety Report 6084413-0 (Version None)
Quarter: 2009Q1

REPORT INFORMATION
  Report Type: 
  Country: None (occurrence: None)
  Receive Date: 20090219
  Receipt Date: 20090219
  Transmission Date: 20090719
  Serious: Yes (Hospitalization)
  Sender: FDA-Public Use
  Company Number: B0522341A

PATIENT
  Age: 36 Year
  Sex: Female

DRUGS (7)
  1. MALARONE [Suspect]
     Indication: PLASMODIUM FALCIPARUM INFECTION
     Dosage: 4TAB PER DAY
     Route: 048
     Dates: start: 20080315, end: 20080317
  2. IVERMECTIN [Concomitant]
     Dosage: 3MG PER DAY
     Route: 048
     Dates: start: 20080315, end: 20080317
  3. RENAGEL [Concomitant]
     Route: 048
  4. GAVISCON [Concomitant]
  5. MYOLASTAN [Concomitant]
  6. PYOSTACINE [Concomitant]
  7. NEXIUM [Concomitant]

REACTIONS (12)
  - ABDOMINAL PAIN [None]
  - ANAEMIA MEGALOBLASTIC [None]
  - APLASIA [None]
  - ASTHENIA [None]
  - BONE MARROW TOXICITY [None]
  - EPISTAXIS [None]
  - MYELOID MATURATION ARREST [None]
  - NAUSEA [None]
  - PAIN [None]
  - PANCYTOPENIA [None]
  - STAPHYLOCOCCAL SEPSIS [None]
  - VOMITING [None]
